FAERS Safety Report 21510401 (Version 1)
Quarter: 2022Q4

REPORT INFORMATION
  Report Type: Report from Study
  Country: US (occurrence: US)
  Receive Date: 20221026
  Receipt Date: 20221026
  Transmission Date: 20230112
  Serious: Yes (Other)
  Sender: FDA-Public Use
  Company Number: US-JAZZ-2022-US-026771

PATIENT
  Sex: Female

DRUGS (7)
  1. XYREM [Suspect]
     Active Substance: SODIUM OXYBATE
     Indication: Narcolepsy
  2. XYREM [Suspect]
     Active Substance: SODIUM OXYBATE
     Indication: Cataplexy
  3. XYREM [Suspect]
     Active Substance: SODIUM OXYBATE
     Indication: Somnolence
  4. METFORMIN [Suspect]
     Active Substance: METFORMIN HYDROCHLORIDE
     Indication: Product used for unknown indication
     Dosage: UNK
  5. TRIAMTERENE [Suspect]
     Active Substance: TRIAMTERENE
     Indication: Product used for unknown indication
  6. FUROSEMIDE [Suspect]
     Active Substance: FUROSEMIDE
     Indication: Product used for unknown indication
  7. RAMIPRIL [Suspect]
     Active Substance: RAMIPRIL
     Indication: Product used for unknown indication

REACTIONS (18)
  - Angioedema [Unknown]
  - Bile duct stenosis [Unknown]
  - Hysterectomy [Unknown]
  - Oophorectomy bilateral [Unknown]
  - Restless legs syndrome [Unknown]
  - Muscle spasms [Unknown]
  - Glomerular filtration rate decreased [Unknown]
  - Glucose tolerance impaired [Unknown]
  - COVID-19 [Unknown]
  - Intervertebral disc degeneration [Unknown]
  - Blood potassium decreased [Unknown]
  - Neuralgia [Unknown]
  - Nausea [Unknown]
  - Dry mouth [Unknown]
  - Platelet aggregation decreased [Unknown]
  - Endometriosis [Unknown]
  - Inappropriate schedule of product administration [Unknown]
  - Product administration interrupted [Unknown]
